FAERS Safety Report 8594711-4 (Version None)
Quarter: 2012Q3

REPORT INFORMATION
  Report Type: 
  Country: None (occurrence: None)
  Receive Date: 20120801
  Receipt Date: 20120717
  Transmission Date: 20120928
  Serious: Yes (Other)
  Sender: FDA-Public Use
  Company Number: FK201202057

PATIENT
  Age: 14 Year
  Sex: Female

DRUGS (3)
  1. ETOPOSIDE [Suspect]
     Indication: ACUTE MYELOID LEUKAEMIA
     Dosage: 100 MG/M2, ON DAYS 6-8, INTRAVENOUS (NOT OTHERWISE SPECIFIED)
     Route: 042
  2. CYTARABINE [Suspect]
     Indication: ACUTE MYELOID LEUKAEMIA
     Dosage: 100 MG/M2, TWICE PER DAY ON DAYS 3-8, INTRAVENOUS (NOT OTHERWISE SPECIFIED)
     Route: 042
  3. IDARUBICIN HCL [Suspect]
     Indication: ACUTE MYELOID LEUKAEMIA
     Dosage: 7 MG/M2, ON DAYS 3, 5 AND 7, INTRAVENOUS (NOT OTHERWISE SPECIFIED)
     Route: 042

REACTIONS (3)
  - HISTIOCYTOSIS [None]
  - BLAST CELL COUNT DECREASED [None]
  - IDIOSYNCRATIC DRUG REACTION [None]
